FAERS Safety Report 5397036-3 (Version None)
Quarter: 2007Q3

REPORT INFORMATION
  Report Type: 
  Country: None (occurrence: None)
  Receive Date: 20070723
  Receipt Date: 20070713
  Transmission Date: 20080115
  Serious: Yes (Hospitalization)
  Sender: FDA-Public Use
  Company Number: CERZ-11786

PATIENT
  Age: 50 Year
  Sex: Male

DRUGS (1)
  1. CEREZYME [Suspect]
     Indication: GAUCHER'S DISEASE

REACTIONS (8)
  - FALL [None]
  - FRACTURED SACRUM [None]
  - HIP FRACTURE [None]
  - PAIN [None]
  - PELVIC FRACTURE [None]
  - RIB FRACTURE [None]
  - WALKING AID USER [None]
  - WRIST FRACTURE [None]
